FAERS Safety Report 12663887 (Version 2)
Quarter: 2017Q1

REPORT INFORMATION
  Report Type: Report from Study
  Country: US (occurrence: US)
  Receive Date: 20160818
  Receipt Date: 20170310
  Transmission Date: 20170428
  Serious: No
  Sender: FDA-Public Use
  Company Number: PHEH2016US020054

PATIENT
  Age: 43 Year
  Sex: Female

DRUGS (2)
  1. GILENYA [Suspect]
     Active Substance: FINGOLIMOD HYDROCHLORIDE
     Indication: MULTIPLE SCLEROSIS RELAPSE
  2. GILENYA [Suspect]
     Active Substance: FINGOLIMOD HYDROCHLORIDE
     Indication: MULTIPLE SCLEROSIS
     Dosage: 0.5 MG, QD
     Route: 048
     Dates: start: 20160805

REACTIONS (8)
  - Headache [Unknown]
  - Nausea [Unknown]
  - Vision blurred [Unknown]
  - Dizziness [Unknown]
  - Hypoaesthesia [Unknown]
  - Peripheral coldness [Unknown]
  - Mobility decreased [Unknown]
  - Malaise [Unknown]

NARRATIVE: CASE EVENT DATE: 20160809
